FAERS Safety Report 19051543 (Version 2)
Quarter: 2021Q2

REPORT INFORMATION
  Report Type: Spontaneous
  Country: AR (occurrence: AR)
  Receive Date: 20210324
  Receipt Date: 20210402
  Transmission Date: 20210717
  Serious: Yes (Other)
  Sender: FDA-Public Use
  Company Number: NVSC2021AR045859

PATIENT
  Age: 75 Year
  Sex: Female

DRUGS (4)
  1. DIOVAN [Suspect]
     Active Substance: VALSARTAN
     Indication: HYPERTENSION
     Dosage: 80 MG, QD
     Route: 065
  2. MIOPROPAN [Concomitant]
     Indication: IRRITABLE BOWEL SYNDROME
     Dosage: UNK
     Route: 065
  3. ASPIRINETAS [Concomitant]
     Active Substance: ASPIRIN
     Indication: PRODUCT USED FOR UNKNOWN INDICATION
     Dosage: UNK (STARTED: SINCE THE INFARCTION)
     Route: 065
  4. DIOVAN [Suspect]
     Active Substance: VALSARTAN
     Indication: INFARCTION
     Dosage: 1 DF, QD, 20 YEARS AGO
     Route: 065

REACTIONS (10)
  - Pain [Not Recovered/Not Resolved]
  - Stress [Unknown]
  - Gastrointestinal disorder [Not Recovered/Not Resolved]
  - Proctalgia [Not Recovered/Not Resolved]
  - Blood pressure increased [Recovering/Resolving]
  - Dizziness [Unknown]
  - Panic attack [Unknown]
  - Abdominal pain upper [Not Recovered/Not Resolved]
  - Liver injury [Unknown]
  - Headache [Unknown]

NARRATIVE: CASE EVENT DATE: 202003
